FAERS Safety Report 5101251-3 (Version None)
Quarter: 2006Q3

REPORT INFORMATION
  Report Type: 
  Country: None (occurrence: None)
  Receive Date: 20060906
  Receipt Date: 20060824
  Transmission Date: 20061208
  Serious: Yes (Hospitalization)
  Sender: FDA-Public Use
  Company Number: 2006JP002844

PATIENT
  Age: 80 Year
  Sex: Female

DRUGS (17)
  1. VESICARE [Suspect]
     Indication: HYPERTONIC BLADDER
     Dosage: SEE IMAGE
     Route: 048
     Dates: start: 20060622, end: 20060705
  2. VESICARE [Suspect]
     Indication: HYPERTONIC BLADDER
     Dosage: SEE IMAGE
     Route: 048
     Dates: start: 20060706, end: 20060802
  3. TAKEPRON (LANSOPRAZOLE) PER ORAL NOS [Suspect]
     Dosage: 15 MG UNKNOWN/D, ORAL
     Route: 048
     Dates: end: 20060808
  4. OMEPRAL (OMEPRAZOLE) PER ORAL NOS [Suspect]
     Dosage: 20 MG, UNKNOWN/D, ORAL
     Route: 048
     Dates: start: 20060808, end: 20060817
  5. PRIMPERAN ELIXIR [Concomitant]
  6. SMP (SODIUM BICARBONATE, SCOPOLIA CARNIOLICA EXTRACT, GENTIANA LUTEA R [Concomitant]
  7. GASMOTIN (MOSAPRIDE CITRATE) [Concomitant]
  8. DIAZEPAM [Concomitant]
  9. AMLODIPINE BESYLATE [Concomitant]
  10. DOXAZOSIN (DOXAZOSIN) [Concomitant]
  11. ENALAPRIL MALEATE [Concomitant]
  12. MAOREAD (FUROSEMIDE) [Concomitant]
  13. BLOPRESS (CANDESARTAN CILEXETIL) [Concomitant]
  14. WARFARIN SODIUM [Concomitant]
  15. RINGEREAZE (LOXOPROGEN SODIUM) [Concomitant]
  16. SODIUM PICOSULFATE (SODIUM PICOSULFATE) [Concomitant]
  17. ABILIT [Concomitant]

REACTIONS (3)
  - HYPERKALAEMIA [None]
  - NAUSEA [None]
  - UNEVALUABLE EVENT [None]
